FAERS Safety Report 25073174 (Version 1)
Quarter: 2025Q1

REPORT INFORMATION
  Report Type: Spontaneous
  Country: US (occurrence: US)
  Receive Date: 20250313
  Receipt Date: 20250313
  Transmission Date: 20250408
  Serious: No
  Sender: CIPLA
  Company Number: US-CIPLA LTD.-2025US00806

PATIENT

DRUGS (1)
  1. SAJAZIR [Suspect]
     Active Substance: ICATIBANT ACETATE
     Indication: Hereditary angioedema
     Route: 058
     Dates: start: 20250109

REACTIONS (6)
  - Insomnia [Unknown]
  - Tremor [Unknown]
  - Hereditary angioedema [Recovered/Resolved]
  - Nasopharyngitis [Unknown]
  - Injection site pain [Unknown]
  - Dizziness [Unknown]

NARRATIVE: CASE EVENT DATE: 20250109
